FAERS Safety Report 7828720-7 (Version None)
Quarter: 2011Q4

REPORT INFORMATION
  Report Type: 
  Country: None (occurrence: None)
  Receive Date: 20111020
  Receipt Date: 20111017
  Transmission Date: 20120403
  Serious: Yes (Other)
  Sender: FDA-Public Use
  Company Number: KW-ABBOTT-11P-091-0865642-00

PATIENT
  Sex: Female

DRUGS (2)
  1. HUMIRA [Suspect]
     Dates: start: 20110401
  2. HUMIRA [Suspect]
     Indication: CROHN'S DISEASE
     Dates: start: 20080201, end: 20100901

REACTIONS (4)
  - ABDOMINAL PAIN LOWER [None]
  - CROHN'S DISEASE [None]
  - TERATOMA [None]
  - INFERTILITY [None]
